FAERS Safety Report 22846047 (Version 6)
Quarter: 2025Q1

REPORT INFORMATION
  Report Type: Spontaneous
  Country: US (occurrence: US)
  Receive Date: 20230821
  Receipt Date: 20250301
  Transmission Date: 20250409
  Serious: Yes (Disabling, Other)
  Sender: AMGEN
  Company Number: US-HORIZON THERAPEUTICS-HZN-2023-006269

PATIENT
  Age: 59 Year
  Sex: Female

DRUGS (60)
  1. TEPEZZA [Suspect]
     Active Substance: TEPROTUMUMAB-TRBW
     Indication: Graves^ disease
     Dosage: 912 MILLIGRAM, Q3WK (FIRST INFUSION OF FIRST ROUND)
     Route: 042
     Dates: start: 20210507, end: 20210507
  2. TEPEZZA [Suspect]
     Active Substance: TEPROTUMUMAB-TRBW
     Indication: Endocrine ophthalmopathy
     Dosage: 1820 MILLIGRAM, Q3WK (SECOND INFUSION OF FIRST ROUND)
     Route: 042
     Dates: start: 20210528, end: 20210528
  3. TEPEZZA [Suspect]
     Active Substance: TEPROTUMUMAB-TRBW
     Dosage: 1832 MILLIGRAM, Q3WK (THIRD INFUSION OF FIRST ROUND)
     Route: 042
     Dates: start: 20210618, end: 20210618
  4. TEPEZZA [Suspect]
     Active Substance: TEPROTUMUMAB-TRBW
     Dosage: 1828 MILLIGRAM, Q3WK (FOURTH INFUSION OF FIRST ROUND)
     Route: 042
     Dates: start: 20210723, end: 20210723
  5. TEPEZZA [Suspect]
     Active Substance: TEPROTUMUMAB-TRBW
     Dosage: 1806 MILLIGRAM, Q3WK (FIFTH INFUSION OF FIRST ROUND)
     Route: 042
     Dates: start: 20210813, end: 20210813
  6. TEPEZZA [Suspect]
     Active Substance: TEPROTUMUMAB-TRBW
     Dosage: 1806 MILLIGRAM, Q3WK (SIXTH INFUSION OF FIRST ROUND)
     Route: 042
     Dates: start: 20210903, end: 20210903
  7. TEPEZZA [Suspect]
     Active Substance: TEPROTUMUMAB-TRBW
     Dosage: 1820 MILLIGRAM, Q3WK (SEVENTH INFUSION OF FIRST ROUND)
     Route: 042
     Dates: start: 20210924, end: 20210924
  8. TEPEZZA [Suspect]
     Active Substance: TEPROTUMUMAB-TRBW
     Dosage: 1820 MILLIGRAM, Q3WK (EIGHTH INFUSION OF FIRST ROUND0
     Route: 042
     Dates: start: 20211015, end: 20211015
  9. TEPEZZA [Suspect]
     Active Substance: TEPROTUMUMAB-TRBW
     Route: 042
     Dates: start: 20220614, end: 20220614
  10. TEPEZZA [Suspect]
     Active Substance: TEPROTUMUMAB-TRBW
     Dosage: 1800 MILLIGRAM, Q3WK SECOND INFUSION OF SECOND ROUND
     Route: 042
     Dates: start: 20220705, end: 20220705
  11. TEPEZZA [Suspect]
     Active Substance: TEPROTUMUMAB-TRBW
     Dosage: 1796 MILLIGRAM, Q3WK THIRD INFUSION OF SECOND ROUND
     Route: 042
     Dates: start: 20220725, end: 20220725
  12. TEPEZZA [Suspect]
     Active Substance: TEPROTUMUMAB-TRBW
     Dosage: 1796 MILLIGRAM, Q3WK ( FOURTH INFUSION OF SECOND ROUND)
     Route: 042
     Dates: start: 20220815, end: 20220815
  13. TEPEZZA [Suspect]
     Active Substance: TEPROTUMUMAB-TRBW
     Dosage: 1724 MILLIGRAM, Q3WK ( FIFTH INFUSION OF SECOND ROUND)
     Route: 042
     Dates: start: 20220906, end: 20220906
  14. TEPEZZA [Suspect]
     Active Substance: TEPROTUMUMAB-TRBW
     Dosage: 1724 MILLIGRAM, Q3WK SIXTH INFUSION OF SECOND ROUND
     Route: 042
     Dates: start: 20220927, end: 20220927
  15. TEPEZZA [Suspect]
     Active Substance: TEPROTUMUMAB-TRBW
     Dosage: 1774 MILLIGRAM, Q3WK SEVENTH INFUSION OF SECOND ROUND
     Route: 042
     Dates: start: 20221017, end: 20221017
  16. TEPEZZA [Suspect]
     Active Substance: TEPROTUMUMAB-TRBW
     Dosage: 1772 MILLIGRAM, Q3WK EIGHTH INFUSION OF SECOND ROUND
     Route: 042
     Dates: start: 20221107, end: 20221107
  17. VITAMINS [Concomitant]
     Active Substance: VITAMINS
     Route: 048
  18. VITAMIN D NOS [Concomitant]
     Active Substance: CHOLECALCIFEROL\ERGOCALCIFEROL
     Route: 048
  19. MAGNESIUM [Concomitant]
     Active Substance: MAGNESIUM
     Route: 048
  20. METHIMAZOLE [Concomitant]
     Active Substance: METHIMAZOLE
     Dosage: 15 MILLIGRAM, QD
     Route: 048
  21. OMEPRAZOLE [Concomitant]
     Active Substance: OMEPRAZOLE
     Route: 048
  22. LUTEIN [Concomitant]
     Active Substance: LUTEIN
     Route: 048
  23. GABAPENTIN [Concomitant]
     Active Substance: GABAPENTIN
     Route: 065
  24. DORZOLAMIDE\TIMOLOL [Concomitant]
     Active Substance: DORZOLAMIDE\TIMOLOL
     Route: 065
  25. CYCLOBENZAPRINE HYDROCHLORIDE [Concomitant]
     Active Substance: CYCLOBENZAPRINE HYDROCHLORIDE
     Route: 065
  26. OMEGA 3 [Concomitant]
     Active Substance: CAPSAICIN
     Route: 065
  27. HERBALS\TURMERIC [Concomitant]
     Active Substance: HERBALS\TURMERIC
     Route: 065
  28. VITAMIN C [Concomitant]
     Active Substance: ASCORBIC ACID
     Route: 065
  29. VITAMIN E [Concomitant]
     Active Substance: .ALPHA.-TOCOPHEROL
     Route: 065
  30. SUMATRIPTAN [Concomitant]
     Active Substance: SUMATRIPTAN
     Route: 065
  31. TYLENOL [Concomitant]
     Active Substance: ACETAMINOPHEN
     Route: 048
     Dates: start: 20221107, end: 20221107
  32. FISH OIL [Concomitant]
     Active Substance: FISH OIL
     Route: 065
  33. VITAMINS [Concomitant]
     Active Substance: VITAMINS
     Dosage: UNK UNK, QD (1 PILL)
     Route: 065
  34. PRILOSEC [Concomitant]
     Active Substance: OMEPRAZOLE MAGNESIUM
     Dosage: 40 MILLIGRAM, QD
     Route: 048
  35. REFRESH CLASSIC [Concomitant]
     Active Substance: POLYVINYL ALCOHOL\POVIDONE
     Route: 047
  36. BIOTIN [Concomitant]
     Active Substance: BIOTIN
     Route: 048
  37. B12 active [Concomitant]
     Dosage: 5000 MICROGRAM, QD
  38. VITAMIN D3 [Concomitant]
     Active Substance: CHOLECALCIFEROL
     Dosage: 50 MICROGRAM, QD
  39. CRESTOR [Concomitant]
     Active Substance: ROSUVASTATIN CALCIUM
     Dosage: 5 MILLIGRAM, QD
     Route: 048
  40. NORCO [Concomitant]
     Active Substance: ACETAMINOPHEN\HYDROCODONE BITARTRATE
     Route: 065
  41. UPNEEQ [Concomitant]
     Active Substance: OXYMETAZOLINE HYDROCHLORIDE
     Indication: Eyelid ptosis
     Route: 047
  42. SALINE [Concomitant]
     Active Substance: SODIUM CHLORIDE
     Route: 040
     Dates: start: 20210507, end: 20210507
  43. SALINE [Concomitant]
     Active Substance: SODIUM CHLORIDE
     Route: 040
     Dates: start: 20210528, end: 20210528
  44. SALINE [Concomitant]
     Active Substance: SODIUM CHLORIDE
     Route: 040
     Dates: start: 20210618, end: 20210618
  45. SALINE [Concomitant]
     Active Substance: SODIUM CHLORIDE
     Route: 040
     Dates: start: 20210723, end: 20210723
  46. SALINE [Concomitant]
     Active Substance: SODIUM CHLORIDE
     Route: 040
     Dates: start: 20210813, end: 20210813
  47. SALINE [Concomitant]
     Active Substance: SODIUM CHLORIDE
     Route: 040
     Dates: start: 20210903, end: 20210903
  48. SALINE [Concomitant]
     Active Substance: SODIUM CHLORIDE
     Route: 040
     Dates: start: 20210924, end: 20210924
  49. SALINE [Concomitant]
     Active Substance: SODIUM CHLORIDE
     Route: 040
     Dates: start: 20211015, end: 20211015
  50. SALINE [Concomitant]
     Active Substance: SODIUM CHLORIDE
     Route: 040
     Dates: start: 20220614, end: 20220614
  51. SALINE [Concomitant]
     Active Substance: SODIUM CHLORIDE
     Route: 040
     Dates: start: 20220705, end: 20220705
  52. SALINE [Concomitant]
     Active Substance: SODIUM CHLORIDE
     Route: 040
     Dates: start: 20220725, end: 20220725
  53. SALINE [Concomitant]
     Active Substance: SODIUM CHLORIDE
     Route: 040
     Dates: start: 20220815, end: 20220815
  54. SALINE [Concomitant]
     Active Substance: SODIUM CHLORIDE
     Route: 040
     Dates: start: 20220906, end: 20220906
  55. SALINE [Concomitant]
     Active Substance: SODIUM CHLORIDE
     Route: 040
     Dates: start: 20220927, end: 20220927
  56. SALINE [Concomitant]
     Active Substance: SODIUM CHLORIDE
     Route: 040
     Dates: start: 20221017, end: 20221017
  57. SALINE [Concomitant]
     Active Substance: SODIUM CHLORIDE
     Route: 040
     Dates: start: 20221107, end: 20221107
  58. RESTASIS [Concomitant]
     Active Substance: CYCLOSPORINE
     Route: 047
     Dates: end: 20220815
  59. COSOPT [Concomitant]
     Active Substance: DORZOLAMIDE HYDROCHLORIDE\TIMOLOL MALEATE
     Dosage: UNK, BID (22.3-6.8 MG/ML)
     Route: 047
     Dates: end: 20210903
  60. TOBRADEX [Concomitant]
     Active Substance: DEXAMETHASONE\TOBRAMYCIN
     Dosage: UNK, QID (APPLY THIN FI LM TO LOWER EYELID EVERY NIGHT AT BEDTIME) (0.3-0.1 PERCENT)
     Dates: end: 20210903

REACTIONS (24)
  - Disability [Not Recovered/Not Resolved]
  - Physical disability [Not Recovered/Not Resolved]
  - Deafness permanent [Not Recovered/Not Resolved]
  - Cataract nuclear [Unknown]
  - Injury [Not Recovered/Not Resolved]
  - Pain [Not Recovered/Not Resolved]
  - Anxiety [Not Recovered/Not Resolved]
  - Emotional distress [Not Recovered/Not Resolved]
  - Discomfort [Not Recovered/Not Resolved]
  - Concomitant disease aggravated [Not Recovered/Not Resolved]
  - Quality of life decreased [Not Recovered/Not Resolved]
  - Eyelid oedema [Unknown]
  - Ear discomfort [Unknown]
  - Economic problem [Not Recovered/Not Resolved]
  - Diplopia [Not Recovered/Not Resolved]
  - Eyelid ptosis [Unknown]
  - Tinnitus [Not Recovered/Not Resolved]
  - Off label use [Unknown]
  - Eyelid retraction [Unknown]
  - Chalazion [Unknown]
  - Eyelid pain [Unknown]
  - Blood pressure increased [Unknown]
  - Blood glucose increased [Unknown]
  - Glycosylated haemoglobin increased [Unknown]

NARRATIVE: CASE EVENT DATE: 20210709
